FAERS Safety Report 18683190 (Version 2)
Quarter: 2021Q1

REPORT INFORMATION
  Report Type: Spontaneous
  Country: CA (occurrence: CA)
  Receive Date: 20201230
  Receipt Date: 20210106
  Transmission Date: 20210419
  Serious: Yes (Death)
  Sender: FDA-Public Use
  Company Number: CA-MYE-2020M1106369AA

PATIENT
  Age: 39 Year
  Sex: Female

DRUGS (2)
  1. MERCAPTAMINE MYLAN [Suspect]
     Active Substance: CYSTEAMINE
     Indication: CORNEAL DEPOSITS
     Dosage: UNK
     Route: 065
     Dates: start: 20190516
  2. CYSTEAMINE HYDROCHLORIDE MYLAN [Suspect]
     Active Substance: CYSTEAMINE HYDROCHLORIDE
     Indication: CORNEAL DEPOSITS
     Dosage: UNK
     Route: 065
     Dates: start: 20190516

REACTIONS (1)
  - Death [Fatal]

NARRATIVE: CASE EVENT DATE: 20201009
